FAERS Safety Report 8347321-8 (Version None)
Quarter: 2012Q1

REPORT INFORMATION
  Report Type: 
  Country: None (occurrence: None)
  Receive Date: 20120315
  Receipt Date: 20110302
  Transmission Date: 20120608
  Serious: No
  Sender: FDA-Public Use
  Company Number: PHHY2010US88857

PATIENT
  Age: 59 Year
  Sex: Female

DRUGS (7)
  1. ADDERALL 10 [Concomitant]
  2. WELLBUTRIN XL [Concomitant]
  3. LAMICTAL [Concomitant]
  4. GILENYA [Suspect]
     Indication: MULTIPLE SCLEROSIS
     Dosage: 0.5 MG, QD, ORAL
     Route: 048
     Dates: start: 20101216
  5. CYMBALTA [Concomitant]
  6. KLONOPIN [Concomitant]
  7. LEVOTHYROXINE SODIUM [Concomitant]

REACTIONS (7)
  - MUSCULAR WEAKNESS [None]
  - FALL [None]
  - BALANCE DISORDER [None]
  - BLINDNESS [None]
  - DIPLOPIA [None]
  - VISUAL ACUITY REDUCED [None]
  - VISION BLURRED [None]
